FAERS Safety Report 8986163 (Version 1)
Quarter: 2012Q4

REPORT INFORMATION
  Report Type: Spontaneous
  Country: US (occurrence: None)
  Receive Date: 20121219
  Receipt Date: 20121219
  Transmission Date: 20130627
  Serious: Yes (Other)
  Sender: FDA-Public Use
  Company Number: None

PATIENT
  Age: 58 Year
  Sex: Male
  Weight: 89.3 kg

DRUGS (17)
  1. CETUXIMAB [Suspect]
     Dosage: 850mg -400mg/m2 loading dose-  once  IV Drip
     Route: 041
     Dates: start: 20121212, end: 20121212
  2. ONDANSETRON [Concomitant]
  3. DEXAMETHASONE [Concomitant]
  4. DEXAMETHASONE [Concomitant]
  5. DOCETAXEL [Concomitant]
  6. CARBOPLATIN [Concomitant]
  7. ACETAMINOPHEN [Concomitant]
  8. DIPHENHYDRAMINE [Concomitant]
  9. METOCLOPRAMIDE [Concomitant]
  10. NEXIUM [Concomitant]
  11. PHENERGAN [Concomitant]
  12. ATIVAN [Concomitant]
  13. CARBATROL [Concomitant]
  14. EMLA [Concomitant]
  15. LAMICTAL [Concomitant]
  16. NEURONTIN [Concomitant]
  17. ACETAMINOPHEN [Concomitant]

REACTIONS (6)
  - Flushing [None]
  - Infusion related reaction [None]
  - Pruritus [None]
  - Rash [None]
  - Blood pressure decreased [None]
  - Dizziness [None]
